FAERS Safety Report 19694694 (Version 3)
Quarter: 2021Q3

REPORT INFORMATION
  Report Type: Spontaneous
  Country: US (occurrence: US)
  Receive Date: 20210812
  Receipt Date: 20210813
  Transmission Date: 20211014
  Serious: Yes (Other)
  Sender: FDA-Public Use
  Company Number: US-JNJFOC-20210800167

PATIENT
  Age: 7 Decade
  Sex: Female

DRUGS (2)
  1. NEUTROGENA ULTRA SHEER BODY MIST SUNSCRN BR^D SPECT SPF 45 (AVO\HOM\OCTI\OCTO\OX) [Suspect]
     Active Substance: AVOBENZONE\HOMOSALATE\OCTISALATE\OCTOCRYLENE\OXYBENZONE
     Indication: PRODUCT USED FOR UNKNOWN INDICATION
     Dosage: SPRAYED ON UNTIL  WAS COVERED. MAYBE 5 PUMPS MORE IS THE SUMMER.AT LEASE 1?3 TIMES A WEEK.
     Route: 061
  2. NEUTROGENA ULTRA SHEER BODY MIST SUNSCREEN BROAD SPECTRUM SPF 30 (AVO\HOM\OCTI\OCTO) [Suspect]
     Active Substance: AVOBENZONE\HOMOSALATE\OCTISALATE\OCTOCRYLENE
     Indication: PRODUCT USED FOR UNKNOWN INDICATION
     Dosage: SPRAYED ON UNTIL  WAS COVERED. MAYBE 5 PUMPS MORE IS THE SUMMER.AT LEASE 1?3 TIMES A WEEK.
     Route: 061

REACTIONS (3)
  - Application site rash [Recovered/Resolved]
  - Ephelides [Recovered/Resolved]
  - Malignant melanoma [Recovered/Resolved]

NARRATIVE: CASE EVENT DATE: 2014
